FAERS Safety Report 18542365 (Version 11)
Quarter: 2023Q1

REPORT INFORMATION
  Report Type: Report from Study
  Country: CA (occurrence: CA)
  Receive Date: 20201124
  Receipt Date: 20230201
  Transmission Date: 20230418
  Serious: Yes (Hospitalization, Other)
  Sender: FDA-Public Use
  Company Number: CA-TAKEDA-2020TUS021015

PATIENT
  Age: 55 Year
  Sex: Female

DRUGS (14)
  1. VEDOLIZUMAB [Suspect]
     Active Substance: VEDOLIZUMAB
     Indication: Colitis ulcerative
     Dosage: 300 MILLIGRAM
     Route: 042
     Dates: start: 20190924
  2. VEDOLIZUMAB [Suspect]
     Active Substance: VEDOLIZUMAB
     Dosage: 300 MILLIGRAM, Q4WEEKS
     Route: 042
     Dates: start: 20200723
  3. VEDOLIZUMAB [Suspect]
     Active Substance: VEDOLIZUMAB
     Dosage: 300 MILLIGRAM, Q4WEEKS
     Route: 042
  4. VEDOLIZUMAB [Suspect]
     Active Substance: VEDOLIZUMAB
     Dosage: 300 MILLIGRAM, Q4WEEKS
     Route: 042
  5. VEDOLIZUMAB [Suspect]
     Active Substance: VEDOLIZUMAB
     Dosage: 300 MILLIGRAM, Q4WEEKS
     Route: 042
  6. VEDOLIZUMAB [Suspect]
     Active Substance: VEDOLIZUMAB
     Dosage: 300 MILLIGRAM, Q4WEEKS
     Route: 042
  7. VEDOLIZUMAB [Suspect]
     Active Substance: VEDOLIZUMAB
     Dosage: 300 MILLIGRAM, Q4WEEKS
     Route: 042
  8. VEDOLIZUMAB [Suspect]
     Active Substance: VEDOLIZUMAB
     Dosage: 300 MILLIGRAM
     Route: 042
  9. VEDOLIZUMAB [Suspect]
     Active Substance: VEDOLIZUMAB
     Dosage: 300 MILLIGRAM, Q4WEEKS
     Route: 042
  10. VEDOLIZUMAB [Suspect]
     Active Substance: VEDOLIZUMAB
     Dosage: 300 MILLIGRAM, Q4WEEKS
     Route: 042
  11. VEDOLIZUMAB [Suspect]
     Active Substance: VEDOLIZUMAB
     Dosage: 300 MILLIGRAM, Q4WEEKS
     Route: 042
  12. VEDOLIZUMAB [Suspect]
     Active Substance: VEDOLIZUMAB
     Dosage: 300 MILLIGRAM, Q4WEEKS
     Route: 042
  13. Salofalk [Concomitant]
     Dosage: UNK
  14. MESALAMINE [Concomitant]
     Active Substance: MESALAMINE
     Dosage: UNK

REACTIONS (21)
  - Pain [Unknown]
  - Hepatic cirrhosis [Unknown]
  - Haematochezia [Unknown]
  - Diabetes mellitus inadequate control [Unknown]
  - Gastrointestinal disorder [Recovered/Resolved]
  - Diarrhoea [Unknown]
  - Frequent bowel movements [Unknown]
  - Abdominal pain lower [Unknown]
  - Stress [Unknown]
  - Hypophagia [Unknown]
  - Anxiety [Unknown]
  - Insomnia [Unknown]
  - Abdominal mass [Unknown]
  - Weight increased [Unknown]
  - Defaecation urgency [Unknown]
  - Faeces discoloured [Unknown]
  - Abdominal distension [Unknown]
  - Constipation [Unknown]
  - Haemorrhoids [Unknown]
  - Fatigue [Unknown]
  - Off label use [Unknown]

NARRATIVE: CASE EVENT DATE: 20200427
